FAERS Safety Report 9520429 (Version 6)
Quarter: 2014Q2

REPORT INFORMATION
  Report Type: Report from Study
  Country: DE (occurrence: DE)
  Receive Date: 20130912
  Receipt Date: 20140409
  Transmission Date: 20141212
  Serious: No
  Sender: FDA-Public Use
  Company Number: PHHY2013DE097323

PATIENT
  Sex: Female

DRUGS (10)
  1. AMN107 [Suspect]
     Indication: CHRONIC MYELOID LEUKAEMIA
     Dosage: 600 MG, PER DAY
     Route: 048
     Dates: start: 20130725, end: 20130910
  2. AMN107 [Suspect]
     Dosage: 300 MG, PER DAY
     Route: 048
     Dates: start: 20130919
  3. SALBU EASYHALER [Concomitant]
  4. BECLO [Concomitant]
  5. KARVEA [Concomitant]
     Dosage: 75 MG
  6. MONO EMBOLEX [Concomitant]
     Dosage: 8000 IU, UNK
     Dates: start: 20131119
  7. HEPARIN [Concomitant]
     Dates: start: 20131119
  8. RIVANOL [Concomitant]
     Dosage: 2 MG, UNK
     Dates: start: 20131119
  9. METOCLOPRAMIDE [Concomitant]
     Dosage: 5 MG, AS NEEDED
     Dates: start: 20130910, end: 20130919
  10. ALLOPURINOL [Concomitant]
     Dosage: 300 MG, UNK
     Dates: start: 20130716

REACTIONS (8)
  - Tinnitus [Recovered/Resolved]
  - Rash [Recovered/Resolved]
  - Heart rate increased [Recovered/Resolved]
  - Insomnia [Recovered/Resolved]
  - Abdominal discomfort [Recovered/Resolved]
  - Pruritus [Recovered/Resolved]
  - Alopecia [Not Recovered/Not Resolved]
  - Thrombophlebitis [Recovered/Resolved]
